FAERS Safety Report 25411650 (Version 5)
Quarter: 2025Q3

REPORT INFORMATION
  Report Type: Report from Study
  Country: CA (occurrence: CA)
  Receive Date: 20250609
  Receipt Date: 20250825
  Transmission Date: 20251021
  Serious: Yes (Other)
  Sender: TAKEDA
  Company Number: CA-TAKEDA-2025TUS052164

PATIENT
  Sex: Female

DRUGS (5)
  1. VEDOLIZUMAB [Suspect]
     Active Substance: VEDOLIZUMAB
     Indication: Colitis ulcerative
  2. VEDOLIZUMAB [Suspect]
     Active Substance: VEDOLIZUMAB
  3. ASACOL [Concomitant]
     Active Substance: MESALAMINE
  4. RAMIPRIL [Concomitant]
     Active Substance: RAMIPRIL
  5. CANDESARTAN [Concomitant]
     Active Substance: CANDESARTAN

REACTIONS (6)
  - Colitis ulcerative [Unknown]
  - Haematochezia [Unknown]
  - Mucous stools [Unknown]
  - Stress [Unknown]
  - Constipation [Unknown]
  - Cough [Not Recovered/Not Resolved]
